FAERS Safety Report 13244800 (Version 3)
Quarter: 2017Q1

REPORT INFORMATION
  Report Type: Report from Study
  Country: US (occurrence: US)
  Receive Date: 20170217
  Receipt Date: 20170315
  Transmission Date: 20170428
  Serious: Yes (Death, Hospitalization)
  Sender: FDA-Public Use
  Company Number: PHEH2017US004670

PATIENT
  Age: 2 Year
  Sex: Female

DRUGS (3)
  1. COLCHICINE. [Suspect]
     Active Substance: COLCHICINE
     Indication: SEROSITIS
     Dosage: 0.6 MG, QD
     Route: 048
  2. ILARIS [Suspect]
     Active Substance: CANAKINUMAB
     Indication: CONNECTIVE TISSUE DISORDER
     Dosage: 180 MG, EVERY 4 WEEKS
     Route: 058
  3. PREDNISOLONE. [Suspect]
     Active Substance: PREDNISOLONE
     Indication: AUTOINFLAMMATORY DISEASE
     Dosage: 5 MG, QD
     Route: 048

REACTIONS (11)
  - Viral infection [Unknown]
  - Bacterial infection [Unknown]
  - Respiratory syncytial virus bronchiolitis [Fatal]
  - Bradycardia [Not Recovered/Not Resolved]
  - Respiratory failure [Fatal]
  - Clubbing [Fatal]
  - Crepitations [Fatal]
  - Acute respiratory distress syndrome [Unknown]
  - Mitral valve incompetence [Unknown]
  - Rash papular [Unknown]
  - Product use issue [Unknown]

NARRATIVE: CASE EVENT DATE: 20170127
